FAERS Safety Report 11077817 (Version 1)
Quarter: 2015Q2

REPORT INFORMATION
  Report Type: Spontaneous
  Country: US (occurrence: US)
  Receive Date: 20150430
  Receipt Date: 20150430
  Transmission Date: 20150821
  Serious: No
  Sender: FDA-Public Use
  Company Number: US-009507513-1504USA004756

PATIENT
  Age: 28 Year
  Sex: Female
  Weight: 49.89 kg

DRUGS (2)
  1. NUVARING [Suspect]
     Active Substance: ETHINYL ESTRADIOL\ETONOGESTREL
     Dosage: 1 UNK, UNK
     Route: 067
     Dates: start: 201501, end: 2015
  2. NUVARING [Suspect]
     Active Substance: ETHINYL ESTRADIOL\ETONOGESTREL
     Indication: PREGNANCY
     Dosage: 1 DF, UNK
     Route: 067
     Dates: start: 20150407, end: 20150408

REACTIONS (7)
  - Vulvovaginal pain [Recovering/Resolving]
  - Device expulsion [Recovered/Resolved]
  - Product quality issue [Unknown]
  - Headache [Recovering/Resolving]
  - Vulvovaginal swelling [Recovering/Resolving]
  - Nausea [Recovering/Resolving]
  - Asthenia [Recovering/Resolving]

NARRATIVE: CASE EVENT DATE: 20150407
